FAERS Safety Report 6762761-6 (Version None)
Quarter: 2010Q2

REPORT INFORMATION
  Report Type: 
  Country: None (occurrence: None)
  Receive Date: 20100609
  Receipt Date: 20100601
  Transmission Date: 20101027
  Serious: Yes (Hospitalization)
  Sender: FDA-Public Use
  Company Number: B0596551A

PATIENT
  Sex: Female
  Weight: 70 kg

DRUGS (5)
  1. LAPATINIB [Suspect]
     Indication: BREAST CANCER
     Dosage: 1500MG PER DAY
     Route: 048
     Dates: start: 20090924
  2. DOCETAXEL [Suspect]
     Indication: BREAST CANCER
     Dosage: 75MGM2 WEEKLY
     Route: 042
     Dates: start: 20090924
  3. LANSOPRAZOLE [Concomitant]
     Indication: PROPHYLAXIS
     Dosage: 30MG PER DAY
     Route: 048
     Dates: start: 20090806
  4. DEXAMETHASONE [Concomitant]
     Indication: VOMITING
     Dosage: 8MG TWICE PER DAY
     Route: 048
     Dates: start: 20090716
  5. ZOFRAN [Concomitant]
     Indication: VOMITING
     Dosage: 8MG PER DAY
     Dates: start: 20090716

REACTIONS (4)
  - ASTHENIA [None]
  - DIARRHOEA [None]
  - MUCOSAL INFLAMMATION [None]
  - NEUTROPENIA [None]
